FAERS Safety Report 18320858 (Version 1)
Quarter: 2020Q3

REPORT INFORMATION
  Report Type: Report from Study
  Country: US (occurrence: US)
  Receive Date: 20200928
  Receipt Date: 20200928
  Transmission Date: 20201103
  Serious: Yes (Hospitalization)
  Sender: FDA-Public Use
  Company Number: US-JNJFOC-A-NJ2020-200156

PATIENT
  Age: 10 Month
  Sex: Male
  Weight: 7.1 kg

DRUGS (7)
  1. SILDENAFIL. [Concomitant]
     Active Substance: SILDENAFIL
     Indication: PULMONARY HYPERTENSION
     Route: 065
     Dates: start: 20190511
  2. UPTRAVI [Suspect]
     Active Substance: SELEXIPAG
     Indication: PULMONARY HYPERTENSION
     Dosage: 200 MCG, BID
     Route: 048
     Dates: start: 20191024
  3. UPTRAVI [Suspect]
     Active Substance: SELEXIPAG
     Dosage: 100 MCG, BID
     Route: 048
     Dates: start: 20191024
  4. BOSENTAN. [Concomitant]
     Active Substance: BOSENTAN
     Indication: PULMONARY HYPERTENSION
     Route: 065
     Dates: start: 20190530
  5. LASIX [Concomitant]
     Active Substance: FUROSEMIDE
     Indication: CHRONIC RESPIRATORY DISEASE
     Route: 065
     Dates: start: 201905
  6. UPTRAVI [Suspect]
     Active Substance: SELEXIPAG
     Route: 050
     Dates: start: 20190817
  7. ALDACTONE                          /00006201 [Concomitant]
     Indication: CHRONIC RESPIRATORY DISEASE
     Route: 065
     Dates: start: 201906

REACTIONS (3)
  - Hospitalisation [Unknown]
  - Off label use [Unknown]
  - Viral infection [Recovered/Resolved]

NARRATIVE: CASE EVENT DATE: 201912
